FAERS Safety Report 25565498 (Version 1)
Quarter: 2025Q3

REPORT INFORMATION
  Report Type: Spontaneous
  Country: EU (occurrence: EU)
  Receive Date: 20250716
  Receipt Date: 20250716
  Transmission Date: 20251021
  Serious: Yes (Other)
  Sender: RANBAXY
  Company Number: EU-SUN PHARMACEUTICAL INDUSTRIES LTD-2025RR-517665

PATIENT
  Age: 68 Year
  Sex: Male

DRUGS (2)
  1. ABIRATERONE [Suspect]
     Active Substance: ABIRATERONE
     Indication: Prostate cancer
     Dosage: 500 MILLIGRAM, DAILY
     Route: 065
     Dates: start: 2018
  2. PREDNISONE [Suspect]
     Active Substance: PREDNISONE
     Indication: Prostate cancer
     Dosage: 5 MILLIGRAM, DAILY
     Route: 065
     Dates: start: 2018

REACTIONS (3)
  - Therapeutic product effect incomplete [Unknown]
  - Hypokalaemia [Recovered/Resolved]
  - Apparent mineralocorticoid excess [Unknown]
